FAERS Safety Report 21908626 (Version 1)
Quarter: 2023Q1

REPORT INFORMATION
  Report Type: Spontaneous
  Country: US (occurrence: None)
  Receive Date: 20230124
  Receipt Date: 20230124
  Transmission Date: 20230418
  Serious: Yes (Hospitalization)
  Sender: FDA-Public Use
  Company Number: None

PATIENT
  Sex: Female
  Weight: 81.19 kg

DRUGS (15)
  1. LENALIDOMIDE [Suspect]
     Active Substance: LENALIDOMIDE
     Indication: Myelofibrosis
     Dosage: FREQUENCY : DAILY;?
     Route: 048
  2. ARANSEP [Concomitant]
  3. ASPIRIN [Concomitant]
  4. ATORVASTATIN [Concomitant]
  5. CARVEDILOL [Concomitant]
     Active Substance: CARVEDILOL
  6. CLONIDINE [Concomitant]
  7. HUMALOG KWIKPEN [Concomitant]
  8. ISOSORBIDE MONONITRATE [Concomitant]
  9. LANTUS SOLOSTAR [Concomitant]
  10. LOSARTAN [Concomitant]
  11. NIFEDIPINE [Concomitant]
  12. OMEPRAZOLE [Concomitant]
  13. PROCARDIA XL [Concomitant]
  14. RETACRIT [Concomitant]
  15. TORSEMIDE [Concomitant]

REACTIONS (4)
  - Seizure [None]
  - Blood pressure increased [None]
  - Blood glucose increased [None]
  - Therapy interrupted [None]
